FAERS Safety Report 24942583 (Version 1)
Quarter: 2025Q1

REPORT INFORMATION
  Report Type: Spontaneous
  Country: US (occurrence: US)
  Receive Date: 20250207
  Receipt Date: 20250207
  Transmission Date: 20250409
  Serious: No
  Sender: SANOFI AVENTIS
  Company Number: US-SA-2025SA036905

PATIENT
  Age: 33 Year
  Sex: Female
  Weight: 53.64 kg

DRUGS (4)
  1. DUPIXENT [Suspect]
     Active Substance: DUPILUMAB
     Indication: Illness
     Dosage: 300 MG, QOW
     Route: 058
  2. DUPIXENT [Suspect]
     Active Substance: DUPILUMAB
     Dosage: 300 MG, Q3W
     Route: 058
  3. ALOE VERA LEAF [Concomitant]
     Active Substance: ALOE VERA LEAF
  4. SPIRONOLACTONE [Concomitant]
     Active Substance: SPIRONOLACTONE

REACTIONS (4)
  - Eyelids pruritus [Recovering/Resolving]
  - Ocular hyperaemia [Recovering/Resolving]
  - Weight decreased [Recovering/Resolving]
  - Inappropriate schedule of product administration [Unknown]
